FAERS Safety Report 7207387-5 (Version None)
Quarter: 2010Q4

REPORT INFORMATION
  Report Type: 
  Country: None (occurrence: None)
  Receive Date: 20101221
  Receipt Date: 20101207
  Transmission Date: 20110411
  Serious: Yes (Hospitalization)
  Sender: FDA-Public Use
  Company Number: CIP10002877

PATIENT
  Age: 88 Year
  Sex: Female

DRUGS (4)
  1. RISEDRONATE SODIUM [Suspect]
     Indication: OSTEOPOROSIS
     Dosage: 17.5 MG ONCE ONLY, ORAL
     Route: 048
     Dates: start: 20101103, end: 20101103
  2. OPALMON (LIMAPROST) [Concomitant]
  3. NEUTROPIN /06251301/ [Concomitant]
  4. (RABBIT VACCINA EXTRACT) [Concomitant]

REACTIONS (5)
  - C-REACTIVE PROTEIN INCREASED [None]
  - DECREASED APPETITE [None]
  - DIARRHOEA [None]
  - ENTEROCOLITIS [None]
  - RENAL IMPAIRMENT [None]
